FAERS Safety Report 21227838 (Version 6)
Quarter: 2024Q4

REPORT INFORMATION
  Report Type: Report from Study
  Country: FR (occurrence: FR)
  Receive Date: 20220818
  Receipt Date: 20241205
  Transmission Date: 20250115
  Serious: Yes (Death, Hospitalization, Other)
  Sender: GILEAD
  Company Number: FR-GILEAD-2022-0594059

PATIENT
  Sex: Female
  Weight: 102 kg

DRUGS (12)
  1. SACITUZUMAB GOVITECAN-HZIY [Suspect]
     Active Substance: SACITUZUMAB GOVITECAN-HZIY
     Indication: Triple negative breast cancer
     Dosage: 8 MG/KG (C1D1)
     Route: 042
     Dates: start: 20220215, end: 20220215
  2. SACITUZUMAB GOVITECAN-HZIY [Suspect]
     Active Substance: SACITUZUMAB GOVITECAN-HZIY
     Dosage: 8.04 MG/KG (C1D8)
     Route: 042
     Dates: start: 20220224, end: 20220224
  3. SACITUZUMAB GOVITECAN-HZIY [Suspect]
     Active Substance: SACITUZUMAB GOVITECAN-HZIY
     Dosage: 6.53 MG/KG (C2D1)
     Route: 042
     Dates: start: 20220323, end: 20220323
  4. SACITUZUMAB GOVITECAN-HZIY [Suspect]
     Active Substance: SACITUZUMAB GOVITECAN-HZIY
     Dosage: 6.32 MG/KG (C2D8)
     Route: 042
     Dates: start: 20220406, end: 20220406
  5. SACITUZUMAB GOVITECAN-HZIY [Suspect]
     Active Substance: SACITUZUMAB GOVITECAN-HZIY
     Dosage: 6.32 MG/KG (C3D1)
     Route: 042
     Dates: start: 20220420, end: 20220420
  6. SACITUZUMAB GOVITECAN-HZIY [Suspect]
     Active Substance: SACITUZUMAB GOVITECAN-HZIY
     Dosage: 6.29 MG/KG (C3D8)
     Route: 042
     Dates: start: 20220426, end: 20220426
  7. SACITUZUMAB GOVITECAN-HZIY [Suspect]
     Active Substance: SACITUZUMAB GOVITECAN-HZIY
     Dosage: 6.32 MG/KG (C4D1)
     Route: 042
     Dates: start: 20220510, end: 20220510
  8. SACITUZUMAB GOVITECAN-HZIY [Suspect]
     Active Substance: SACITUZUMAB GOVITECAN-HZIY
     Dosage: 6.32 MG/KG (C4D8)
     Route: 042
     Dates: start: 20220517, end: 20220517
  9. SACITUZUMAB GOVITECAN-HZIY [Suspect]
     Active Substance: SACITUZUMAB GOVITECAN-HZIY
     Dosage: 6.32 MG/KG (C5D1)
     Route: 042
     Dates: start: 20220531, end: 20220531
  10. SACITUZUMAB GOVITECAN-HZIY [Suspect]
     Active Substance: SACITUZUMAB GOVITECAN-HZIY
     Dosage: 6.32 MG/KG (C5D8)
     Route: 042
     Dates: start: 20220607, end: 20220607
  11. SACITUZUMAB GOVITECAN-HZIY [Suspect]
     Active Substance: SACITUZUMAB GOVITECAN-HZIY
     Dosage: 6.19 MG/KG (C6D1)
     Route: 042
     Dates: start: 20220621, end: 20220621
  12. METHOTREXATE [Concomitant]
     Active Substance: METHOTREXATE

REACTIONS (4)
  - Febrile bone marrow aplasia [Unknown]
  - Death [Fatal]
  - Meningitis [Unknown]
  - Neurological decompensation [Unknown]

NARRATIVE: CASE EVENT DATE: 20220307
